FAERS Safety Report 18495548 (Version 1)
Quarter: 2020Q4

REPORT INFORMATION
  Report Type: Spontaneous
  Country: US (occurrence: US)
  Receive Date: 20201112
  Receipt Date: 20201112
  Transmission Date: 20210114
  Serious: Yes (Hospitalization)
  Sender: FDA-Public Use
  Company Number: US-TEVA-2020-US-1847179

PATIENT
  Age: 56 Year
  Sex: Female

DRUGS (1)
  1. VECURONIUM BROMIDE. [Suspect]
     Active Substance: VECURONIUM BROMIDE
     Route: 065

REACTIONS (5)
  - Rash [Unknown]
  - Rash erythematous [Unknown]
  - Circulatory collapse [Recovered/Resolved]
  - Tachycardia [Unknown]
  - Cardiovascular disorder [Not Recovered/Not Resolved]
